FAERS Safety Report 21115622 (Version 2)
Quarter: 2022Q3

REPORT INFORMATION
  Report Type: Spontaneous
  Country: JP (occurrence: JP)
  Receive Date: 20220721
  Receipt Date: 20220818
  Transmission Date: 20221027
  Serious: Yes (Other)
  Sender: FDA-Public Use
  Company Number: JP-GILEAD-2022-0590122

PATIENT
  Sex: Male

DRUGS (1)
  1. EPCLUSA [Suspect]
     Active Substance: SOFOSBUVIR\VELPATASVIR
     Indication: Hepatic cirrhosis
     Dosage: 1 DOSAGE FORM
     Route: 048
     Dates: start: 20220426, end: 20220718

REACTIONS (2)
  - Hypokalaemia [Not Recovered/Not Resolved]
  - Skin candida [Not Recovered/Not Resolved]

NARRATIVE: CASE EVENT DATE: 20220621
